FAERS Safety Report 13225081 (Version 2)
Quarter: 2017Q1

REPORT INFORMATION
  Report Type: Report from Study
  Country: None (occurrence: US)
  Receive Date: 20170213
  Receipt Date: 20170328
  Transmission Date: 20170428
  Serious: Yes (Hospitalization, Other)
  Sender: FDA-Public Use
  Company Number: US-ABBVIE-17K-163-1867693-00

PATIENT
  Sex: Female

DRUGS (4)
  1. HUMIRA [Suspect]
     Active Substance: ADALIMUMAB
     Route: 058
     Dates: start: 201607
  2. HUMIRA [Suspect]
     Active Substance: ADALIMUMAB
     Route: 058
     Dates: start: 201410, end: 2016
  3. HUMIRA [Suspect]
     Active Substance: ADALIMUMAB
     Indication: CROHN^S DISEASE
     Route: 058
     Dates: start: 2009, end: 201409
  4. HUMIRA [Suspect]
     Active Substance: ADALIMUMAB
     Route: 058
     Dates: start: 201605, end: 201606

REACTIONS (12)
  - Drug ineffective [Not Recovered/Not Resolved]
  - Arthralgia [Recovering/Resolving]
  - Hypoaesthesia [Recovered/Resolved]
  - Endometriosis [Recovered/Resolved]
  - Pain [Recovering/Resolving]
  - Blood iron decreased [Recovered/Resolved]
  - Fatigue [Recovering/Resolving]
  - Pelvic pain [Recovered/Resolved]
  - Sepsis [Recovered/Resolved]
  - Small intestinal obstruction [Recovered/Resolved]
  - Dermoid cyst [Recovered/Resolved]
  - Gastrointestinal inflammation [Recovered/Resolved]

NARRATIVE: CASE EVENT DATE: 2014
